FAERS Safety Report 26111172 (Version 1)
Quarter: 2025Q4

REPORT INFORMATION
  Report Type: Spontaneous
  Country: JP (occurrence: JP)
  Receive Date: 20251202
  Receipt Date: 20251202
  Transmission Date: 20260118
  Serious: Yes (Death, Other)
  Sender: CITIUS PHARMACEUTICALS
  Company Number: JP-CITIUS PHARMACEUTICALS, INC.-2025CTS000035

PATIENT
  Age: 40 Year
  Sex: Female

DRUGS (3)
  1. DENILEUKIN DIFTITOX [Suspect]
     Active Substance: DENILEUKIN DIFTITOX
     Indication: Cutaneous T-cell lymphoma recurrent
     Dosage: UNK
     Route: 041
  2. ROMIDEPSIN [Concomitant]
     Active Substance: ROMIDEPSIN
     Indication: Cutaneous T-cell lymphoma recurrent
  3. FORODESINE HYDROCHLORIDE [Concomitant]
     Active Substance: FORODESINE HYDROCHLORIDE
     Indication: Cutaneous T-cell lymphoma recurrent
     Dosage: UNK

REACTIONS (1)
  - Death [Fatal]
